FAERS Safety Report 7206897-4 (Version None)
Quarter: 2010Q4

REPORT INFORMATION
  Report Type: 
  Country: None (occurrence: None)
  Receive Date: 20101221
  Receipt Date: 20101201
  Transmission Date: 20110411
  Serious: No
  Sender: FDA-Public Use
  Company Number: 54973

PATIENT
  Age: 39 Year
  Sex: Male

DRUGS (1)
  1. HYLAND'S LEG CRAMPS WITH QUININE [Suspect]
     Indication: MUSCLE SPASMS
     Dosage: 2 CAPLETS TAKEN ONCE

REACTIONS (2)
  - ABDOMINAL PAIN UPPER [None]
  - BACK PAIN [None]
